FAERS Safety Report 9772965 (Version 3)
Quarter: 2014Q1

REPORT INFORMATION
  Report Type: Spontaneous
  Country: JP (occurrence: JP)
  Receive Date: 20131219
  Receipt Date: 20140205
  Transmission Date: 20141002
  Serious: Yes (Life-Threatening, Disabling, Other)
  Sender: FDA-Public Use
  Company Number: JP-OTSUKA-JP-2013-13297

PATIENT
  Age: 1 Year
  Sex: Male
  Weight: 10.1 kg

DRUGS (104)
  1. BUSULFEX [Suspect]
     Indication: BONE MARROW CONDITIONING REGIMEN
     Dosage: 12 MG MILLIGRAM(S), TID
     Route: 041
     Dates: start: 20101201, end: 20101201
  2. BUSULFEX [Suspect]
     Dosage: 12 MG MILLIGRAM(S), QID
     Route: 041
     Dates: start: 20101202, end: 20101204
  3. BUSULFEX [Suspect]
     Dosage: 12 MG MILLIGRAM(S), QD
     Route: 041
     Dates: start: 20101205, end: 20101205
  4. FLUDARA [Suspect]
     Indication: BONE MARROW CONDITIONING REGIMEN
     Dosage: 14 MG MILLIGRAM(S), QD
     Route: 041
     Dates: start: 20101205, end: 20101208
  5. ALKERAN [Suspect]
     Indication: BONE MARROW CONDITIONING REGIMEN
     Dosage: 40 MG MILLIGRAM(S), BID
     Route: 042
     Dates: start: 20101205, end: 20101206
  6. SOLDEM 1 [Concomitant]
     Indication: FLUID REPLACEMENT
     Dosage: 500 ML MILLILITRE(S), BID
     Route: 041
     Dates: end: 20101211
  7. HEPARIN SODIUM [Concomitant]
     Indication: FLUID REPLACEMENT
     Dosage: 0.5 ML MILLILITRE(S), BID
     Route: 041
  8. MEYLON [Concomitant]
     Indication: FLUID REPLACEMENT
     Dosage: 20 ML MILLILITRE(S), FLUXIONAL
     Route: 041
  9. MEYLON [Concomitant]
     Indication: PH URINE DECREASED
  10. BAKTAR [Concomitant]
     Indication: INFECTION PROPHYLAXIS
     Dosage: 0.5 G GRAM(S), QD
     Route: 048
     Dates: end: 20121215
  11. FLUCONAZOLE [Concomitant]
     Indication: INFECTION PROPHYLAXIS
     Dosage: 1 DF DOSAGE FORM, QD
     Route: 048
     Dates: start: 20101126, end: 20101213
  12. FLUCONAZOLE [Concomitant]
     Dosage: 100 MG MILLIGRAM(S), QD
     Route: 048
     Dates: start: 20110121
  13. POLYMIXIN B SULFATE [Concomitant]
     Indication: INFECTION PROPHYLAXIS
     Dosage: 1/3 DF DOSAGE FORM, TID
     Route: 048
     Dates: start: 20101126, end: 20101215
  14. POLYMIXIN B SULFATE [Concomitant]
     Dosage: 1/3 DF DOSAGE FORM, TID
     Route: 050
     Dates: start: 20101217, end: 20110101
  15. BACCIDAL [Concomitant]
     Indication: INFECTION PROPHYLAXIS
     Dosage: 50 MG MILLIGRAM(S), BID
     Route: 048
     Dates: start: 20101126, end: 20101215
  16. BACCIDAL [Concomitant]
     Dosage: 50 MG MILLIGRAM(S), BID
     Route: 050
     Dates: start: 20101217, end: 20110101
  17. RIVOTRIL [Concomitant]
     Indication: CONVULSION PROPHYLAXIS
     Dosage: 0.5 MG MILLIGRAM(S), BID
     Route: 048
     Dates: start: 20101130, end: 20101215
  18. DENOSINE [Concomitant]
     Indication: BONE MARROW CONDITIONING REGIMEN
     Dosage: 50 MG MILLIGRAM(S), BID
     Route: 041
     Dates: start: 20101201, end: 20101207
  19. GRANISETRON [Concomitant]
     Indication: BONE MARROW CONDITIONING REGIMEN
     Dosage: 1 MG MILLIGRAM(S), BID
     Route: 041
     Dates: start: 20101201, end: 20101208
  20. VICCLOX [Concomitant]
     Indication: INFECTION PROPHYLAXIS
     Dosage: 100 MG MILLIGRAM(S), TID
     Route: 048
     Dates: start: 20101203, end: 20101213
  21. ZYLORIC [Concomitant]
     Indication: PROPHYLAXIS
     Dosage: 1/3 DF DOSAGE FORM, TID
     Route: 048
     Dates: start: 20101203, end: 20101215
  22. LASIX [Concomitant]
     Indication: OEDEMA
     Dosage: 0.8 ML MILLILITRE(S), BID
     Route: 042
     Dates: start: 20101203, end: 20101205
  23. LASIX [Concomitant]
     Dosage: 0.8 ML MILLILITRE(S), TID
     Route: 042
     Dates: start: 20101206, end: 20101206
  24. LASIX [Concomitant]
     Dosage: 0.8 ML MILLILITRE(S), QID
     Route: 042
     Dates: start: 20101207, end: 20101213
  25. LASIX [Concomitant]
     Dosage: 0.8 ML MILLILITRE(S), BID
     Route: 042
     Dates: start: 20101213, end: 20101214
  26. LASIX [Concomitant]
     Dosage: 0.8 ML MILLILITRE(S), TID
     Route: 042
     Dates: start: 20101215, end: 20101215
  27. LASIX [Concomitant]
     Dosage: 0.8 ML MILLILITRE(S), QID
     Route: 042
     Dates: start: 20101216, end: 20101224
  28. URSO [Concomitant]
     Indication: THROMBOSIS PROPHYLAXIS
     Dosage: 12.5 MG MILLIGRAM(S), BID
     Route: 048
     Dates: start: 20101203, end: 2011
  29. URSO [Concomitant]
     Dosage: 12.5 MG MILLIGRAM(S), BID
     Route: 048
     Dates: start: 20110121
  30. SAXIZON [Concomitant]
     Indication: ALLERGY PROPHYLAXIS
     Dosage: 100 MG MILLIGRAM(S), QD
     Route: 041
     Dates: start: 20101204
  31. ATARAX-P [Concomitant]
     Indication: ALLERGY PROPHYLAXIS
     Dosage: 0.4 ML MILLILITRE(S), QD
     Route: 042
     Dates: start: 20101204, end: 20101204
  32. ATARAX-P [Concomitant]
     Dosage: 0.25 ML MILLILITRE(S), DAILY DOSE
     Route: 042
     Dates: start: 20101210, end: 20101210
  33. CEFEPIME [Concomitant]
     Indication: INFECTION PROPHYLAXIS
     Dosage: 400 MG MILLIGRAM(S), TID
     Route: 042
     Dates: start: 20101204, end: 20101208
  34. CEFEPIME [Concomitant]
     Indication: INFECTION
     Dosage: 500 ML MILLILITRE(S), BID
     Route: 042
     Dates: start: 20101215, end: 20101215
  35. CEFEPIME [Concomitant]
     Dosage: 500 ML MILLILITRE(S), TID
     Route: 042
     Dates: start: 20101216, end: 20101217
  36. CEFEPIME [Concomitant]
     Dosage: 500 ML MILLILITRE(S), BID
     Route: 042
     Dates: start: 20101218, end: 20101218
  37. CEFEPIME [Concomitant]
     Dosage: 500 ML MILLILITRE(S), BID
     Route: 042
     Dates: start: 20101222, end: 20101226
  38. SOLDACTONE [Concomitant]
     Indication: OEDEMA
     Dosage: 10 MG MILLIGRAM(S), TID
     Route: 042
     Dates: start: 20101206, end: 20101206
  39. SOLDACTONE [Concomitant]
     Dosage: 10 MG MILLIGRAM(S), QID
     Route: 042
     Dates: start: 20101207, end: 20101213
  40. SOLDACTONE [Concomitant]
     Dosage: 10 MG MILLIGRAM(S), BID
     Route: 042
     Dates: start: 20101213, end: 20101214
  41. SOLDACTONE [Concomitant]
     Dosage: 10 MG MILLIGRAM(S), TID
     Route: 042
     Dates: start: 20101215, end: 20101215
  42. SOLDACTONE [Concomitant]
     Dosage: 10 MG MILLIGRAM(S), QID
     Route: 042
     Dates: start: 20101216, end: 20101216
  43. PROGRAF [Concomitant]
     Indication: BONE MARROW CONDITIONING REGIMEN
     Dosage: 0.3 MG MILLIGRAM(S), QD
     Route: 041
     Dates: start: 20101209, end: 20110117
  44. GLUCOSE [Concomitant]
     Indication: FLUID REPLACEMENT
     Dosage: 500 ML MILLILITRE(S), QD
     Route: 041
     Dates: start: 20101209, end: 2011
  45. SOL-MELCORT [Concomitant]
     Indication: ALLERGY PROPHYLAXIS
     Dosage: 20 MG MILLIGRAM(S), QD
     Route: 041
     Dates: start: 20101210, end: 20101210
  46. MUSCULAX [Concomitant]
     Indication: SEDATION
     Dosage: 40 MG MILLIGRAM(S), DAILY DOSE
     Route: 041
     Dates: start: 20101210, end: 20101224
  47. SEISHOKU [Concomitant]
     Indication: SEDATION
     Dosage: 40 ML MILLILITRE(S), DAILY DOSE
     Route: 041
     Dates: start: 20101210, end: 20101224
  48. SEISHOKU [Concomitant]
     Dosage: 49 ML MILLILITRE(S), DAILY DOSE
     Route: 041
     Dates: start: 20101212, end: 20101227
  49. SEISHOKU [Concomitant]
     Dosage: 16 ML MILLILITRE(S), DAILY DOSE
     Route: 041
     Dates: start: 20101216, end: 20101227
  50. SEISHOKU [Concomitant]
     Dosage: 49 ML MILLILITRE(S), DAILY DOSE
     Route: 041
     Dates: start: 20110121, end: 20110224
  51. PENTCILLIN [Concomitant]
     Indication: INFECTION
     Dosage: 0.5 G GRAM(S), BID
     Route: 042
     Dates: start: 20101211, end: 20101214
  52. PENTCILLIN [Concomitant]
     Dosage: 500 MG MILLIGRAM(S), QD
     Route: 042
     Dates: start: 20110101, end: 20110101
  53. MORPHINE HYDROCHLORIDE [Concomitant]
     Indication: PAIN MANAGEMENT
     Dosage: 10 MG MILLIGRAM(S), DAILY DOSE
     Route: 041
     Dates: start: 20101212, end: 20101227
  54. MORPHINE HYDROCHLORIDE [Concomitant]
     Dosage: 10 MG MILLIGRAM(S), DAILY DOSE
     Route: 041
     Dates: start: 20110121, end: 20110204
  55. SOLDEM 3AG [Concomitant]
     Indication: FLUID REPLACEMENT
     Dosage: 500 ML MILLILITRE(S), QD
     Route: 041
     Dates: start: 20101212, end: 20101228
  56. SOLDEM 3AG [Concomitant]
     Dosage: 500 ML MILLILITRE(S), BID
     Route: 041
     Dates: start: 20110211
  57. FLUCONAZOLE [Concomitant]
     Indication: GASTROENTERITIS
     Dosage: 100 MG MILLIGRAM(S), QD
     Route: 042
     Dates: start: 20101214, end: 20101216
  58. VICCLOX [Concomitant]
     Indication: INFECTION
     Dosage: 50 MG MILLIGRAM(S), TID
     Route: 041
     Dates: start: 20101214, end: 20101216
  59. MINOCYCLINE [Concomitant]
     Indication: INFECTION
     Dosage: 20 MG MILLIGRAM(S), BID
     Route: 041
     Dates: start: 20101215, end: 20101217
  60. MINOCYCLINE [Concomitant]
     Dosage: 20 MG MILLIGRAM(S), BID
     Route: 041
     Dates: start: 20101222, end: 20101227
  61. MIDAZOLAM [Concomitant]
     Indication: SEDATION
     Dosage: 4 ML MILLILITRE(S), DAILY DOSE
     Route: 041
     Dates: start: 20101216, end: 20101227
  62. VEEN D [Concomitant]
     Indication: FLUID REPLACEMENT
     Dosage: 500 ML MILLILITRE(S), QD
     Route: 041
     Dates: start: 20101216, end: 20101222
  63. ACICLOVIR [Concomitant]
     Indication: INFECTION
     Dosage: 50 MG MILLIGRAM(S), BID
     Route: 041
     Dates: start: 20101216, end: 20110117
  64. FAMOTIDINE [Concomitant]
     Indication: PROPHYLAXIS
     Dosage: 5 MG MILLIGRAM(S), QD
     Route: 042
     Dates: start: 20101216, end: 20101220
  65. FAMOTIDINE [Concomitant]
     Dosage: 5 MG MILLIGRAM(S), BID
     Route: 042
     Dates: start: 20110109, end: 20110110
  66. FAMOTIDINE [Concomitant]
     Dosage: 5 MG MILLIGRAM(S), BID
     Route: 042
     Dates: start: 20110127, end: 20110210
  67. CELLCEPT [Concomitant]
     Indication: IMMUNOSUPPRESSION
     Dosage: 500 MG MILLIGRAM(S), BID
     Route: 050
     Dates: start: 20101217, end: 20110103
  68. CELLCEPT [Concomitant]
     Indication: PROPHYLAXIS AGAINST TRANSPLANT REJECTION
     Dosage: 250 MG MILLIGRAM(S), BID
     Route: 048
     Dates: start: 20110121, end: 20110127
  69. CELLCEPT [Concomitant]
     Dosage: 250 MG MILLIGRAM(S), QD
     Route: 048
     Dates: start: 20110127
  70. CALCICOL [Concomitant]
     Indication: MINERAL SUPPLEMENTATION
     Dosage: 5 ML MILLILITRE(S), QD
     Route: 042
     Dates: start: 20101216
  71. VANCOMYCIN [Concomitant]
     Indication: INFECTION
     Dosage: 210 ML MILLILITRE(S), BID
     Route: 041
     Dates: start: 20101218, end: 20101221
  72. MAGNESIUM SULFATE [Concomitant]
     Indication: MINERAL SUPPLEMENTATION
     Dosage: 10 ML MILLILITRE(S), DAILY DOSE
     Route: 042
     Dates: start: 20101218, end: 20101218
  73. MEROPEN [Concomitant]
     Indication: INFECTION
     Dosage: 350 MG MILLIGRAM(S), TID
     Route: 041
     Dates: start: 20101218, end: 20101221
  74. MEROPEN [Concomitant]
     Dosage: 400 MG MILLIGRAM(S), TID
     Route: 041
     Dates: start: 20101226, end: 20110101
  75. KAYTWO N [Concomitant]
     Indication: VITAMIN K DEFICIENCY
     Dosage: 2 ML MILLILITRE(S), QD
     Route: 042
     Dates: start: 20101218, end: 20101218
  76. KAYTWO N [Concomitant]
     Dosage: 2 ML MILLILITRE(S), QD
     Route: 042
     Dates: start: 20101230, end: 20101230
  77. KAYTWO N [Concomitant]
     Dosage: 2 ML MILLILITRE(S), QD
     Route: 042
     Dates: start: 20110103, end: 20110103
  78. KAYTWO N [Concomitant]
     Dosage: 2 ML MILLILITRE(S), QD
     Route: 042
     Dates: start: 20110110, end: 20110110
  79. KAYTWO N [Concomitant]
     Dosage: 2 ML MILLILITRE(S), QD
     Route: 042
     Dates: start: 20110113, end: 20110113
  80. KAYTWO N [Concomitant]
     Dosage: 5 MG MILLIGRAM(S), QD
     Route: 042
     Dates: start: 20110122, end: 20110122
  81. KAYTWO N [Concomitant]
     Dosage: 5 MG MILLIGRAM(S), QD
     Route: 042
     Dates: start: 20110129, end: 20110129
  82. FUNGUARD [Concomitant]
     Indication: INFECTION
     Dosage: 50 MG MILLIGRAM(S), QD
     Route: 041
     Dates: start: 20101218, end: 20101226
  83. FUNGUARD [Concomitant]
     Dosage: 50 MG MILLIGRAM(S), QD
     Route: 041
     Dates: start: 20110106, end: 20110112
  84. FUNGUARD [Concomitant]
     Dosage: 50 MG MILLIGRAM(S), BID
     Route: 041
     Dates: start: 20110113, end: 20110123
  85. VFEND [Concomitant]
     Indication: INFECTION
     Dosage: 30 MG MILLIGRAM(S), BID
     Route: 041
     Dates: start: 20101226, end: 20110105
  86. AMIKACIN SULFATE [Concomitant]
     Indication: INFECTION
     Dosage: 60 MG MILLIGRAM(S), QD
     Route: 041
     Dates: start: 20101227, end: 20110101
  87. AMIKACIN SULFATE [Concomitant]
     Dosage: 30 MG MILLIGRAM(S), QD
     Route: 041
     Dates: start: 20101227, end: 20110101
  88. ANTHROBIN P [Concomitant]
     Indication: ANTITHROMBIN III DECREASED
     Dosage: 500 IU, QD
     Route: 042
     Dates: start: 20101227, end: 20101227
  89. ANTHROBIN P [Concomitant]
     Dosage: 500 IU, QD
     Route: 042
     Dates: start: 20101230, end: 20101230
  90. ANTHROBIN P [Concomitant]
     Dosage: 500 IU, QD
     Route: 042
     Dates: start: 20110107, end: 20110107
  91. ANTHROBIN P [Concomitant]
     Dosage: 500 IU, QD
     Route: 042
     Dates: start: 20110122, end: 20110122
  92. ANTHROBIN P [Concomitant]
     Dosage: 500 IU, QD
     Route: 042
     Dates: start: 20110124, end: 20110124
  93. HICALIQ [Concomitant]
     Indication: PARENTERAL NUTRITION
     Dosage: 700 ML MILLILITRE(S), QD
     Route: 041
     Dates: start: 20101229, end: 20110210
  94. SODIUM CHLORIDE [Concomitant]
     Indication: PARENTERAL NUTRITION
     Dosage: 30 ML MILLILITRE(S), QD
     Route: 041
     Dates: start: 20101229, end: 20110210
  95. GLUCOSE [Concomitant]
     Indication: PARENTERAL NUTRITION
     Dosage: 100 ML MILLILITRE(S), QD
     Route: 041
     Dates: start: 20101229, end: 20110210
  96. M.V.I.-12 [Concomitant]
     Indication: PARENTERAL NUTRITION
     Dosage: 2 ML MILLILITRE(S), QD
     Route: 041
     Dates: start: 20101229, end: 20110210
  97. MINERALIN [Concomitant]
     Indication: PARENTERAL NUTRITION
     Dosage: 1 ML MILLILITRE(S), QD
     Route: 041
     Dates: start: 20101230, end: 20101230
  98. ELEMENMIC [Concomitant]
     Indication: PARENTERAL NUTRITION
     Dosage: 1 ML MILLILITRE(S), QD
     Route: 041
     Dates: start: 20101231, end: 20101231
  99. SULBACILLIN [Concomitant]
     Indication: INFECTION PROPHYLAXIS
     Dosage: 37.5 MG MILLIGRAM(S), TID
     Route: 042
     Dates: start: 2010, end: 2010
  100. HYALEIN [Concomitant]
     Indication: PROPHYLAXIS
     Dosage: UNK, QS, OU
     Route: 047
     Dates: start: 2010
  101. FUNGIZONE [Concomitant]
     Indication: INFECTION PROPHYLAXIS
     Dosage: 5 MG MILLIGRAM(S), TID
     Route: 055
     Dates: start: 2010
  102. BENAMBAX [Concomitant]
     Indication: PROPHYLAXIS
     Dosage: 100 MG MILLIGRAM(S), QD
     Route: 055
     Dates: start: 20110103, end: 20110203
  103. VENETLIN [Concomitant]
     Indication: BRONCHIECTASIS
     Dosage: 0.1 ML MILLILITRE(S), DAILY DOSE
     Route: 055
     Dates: start: 20110103, end: 20110203
  104. SOLITA-T NO.2 [Concomitant]
     Indication: FLUID REPLACEMENT
     Dosage: UNK, PRN
     Route: 041
     Dates: start: 20110103

REACTIONS (9)
  - Bone marrow failure [Recovering/Resolving]
  - Pulmonary oedema [Recovering/Resolving]
  - Pyrexia [Recovering/Resolving]
  - Hepatomegaly [Recovering/Resolving]
  - Ascites [Recovering/Resolving]
  - Haematemesis [Recovering/Resolving]
  - Melaena [Recovering/Resolving]
  - Venoocclusive liver disease [Recovering/Resolving]
  - Rash [Recovering/Resolving]
